FAERS Safety Report 24993111 (Version 1)
Quarter: 2025Q1

REPORT INFORMATION
  Report Type: Spontaneous
  Country: CA (occurrence: CA)
  Receive Date: 20250221
  Receipt Date: 20250221
  Transmission Date: 20250409
  Serious: Yes (Hospitalization)
  Sender: NOVO NORDISK
  Company Number: None

PATIENT
  Age: 49 Year
  Sex: Female

DRUGS (2)
  1. RYBELSUS [Suspect]
     Active Substance: SEMAGLUTIDE
     Indication: Weight control
     Route: 048
  2. CONTRAVE [Suspect]
     Active Substance: BUPROPION HYDROCHLORIDE\NALTREXONE HYDROCHLORIDE
     Indication: Weight control
     Route: 048

REACTIONS (5)
  - Depressed mood [Not Recovered/Not Resolved]
  - Hunger [Not Recovered/Not Resolved]
  - Somnolence [Not Recovered/Not Resolved]
  - Pancreatitis [Not Recovered/Not Resolved]
  - Product use in unapproved indication [Unknown]
